FAERS Safety Report 5242957-5 (Version None)
Quarter: 2007Q1

REPORT INFORMATION
  Report Type: 
  Country: None (occurrence: None)
  Receive Date: 20070215
  Receipt Date: 20070202
  Transmission Date: 20070707
  Serious: No
  Sender: FDA-Public Use
  Company Number: 236201

PATIENT
  Sex: Female

DRUGS (1)
  1. AVASTIN [Suspect]
     Indication: BREAST CANCER METASTATIC

REACTIONS (1)
  - GINGIVAL EROSION [None]
